FAERS Safety Report 15562587 (Version 1)
Quarter: 2018Q4

REPORT INFORMATION
  Report Type: Spontaneous
  Country: US (occurrence: US)
  Receive Date: 20181029
  Receipt Date: 20181029
  Transmission Date: 20190205
  Serious: Yes (Other)
  Sender: FDA-Public Use
  Company Number: US-JNJFOC-20180907021

PATIENT
  Age: 69 Year
  Sex: Male

DRUGS (1)
  1. INVOKANA [Suspect]
     Active Substance: CANAGLIFLOZIN
     Indication: TYPE 2 DIABETES MELLITUS
     Dosage: BEFORE FIRST MEAL OF THE DAY
     Route: 048
     Dates: start: 20131025

REACTIONS (3)
  - Osteomyelitis [Unknown]
  - Impaired healing [Unknown]
  - Limb amputation [Unknown]

NARRATIVE: CASE EVENT DATE: 201711
